FAERS Safety Report 13908480 (Version 1)
Quarter: 2017Q3

REPORT INFORMATION
  Report Type: Spontaneous
  Country: US (occurrence: US)
  Receive Date: 20170827
  Receipt Date: 20170827
  Transmission Date: 20171127
  Serious: No
  Sender: FDA-Public Use
  Company Number: US-009507513-1708USA010219

PATIENT
  Age: 53 Year
  Sex: Female

DRUGS (6)
  1. AMLODIPINE [Concomitant]
     Active Substance: AMLODIPINE BESYLATE
  2. HUMALOG [Concomitant]
     Active Substance: INSULIN LISPRO
  3. GABAPENTIN. [Concomitant]
     Active Substance: GABAPENTIN
  4. ZEPATIER [Suspect]
     Active Substance: ELBASVIR\GRAZOPREVIR
     Indication: HEPATITIS C
     Dosage: TAKE 1 TABLET BY MOUTH EVERY DAY; TOTAL DAILY DOSE: 50-100 MG
     Route: 048
  5. EFFEXOR [Concomitant]
     Active Substance: VENLAFAXINE HYDROCHLORIDE
  6. LANTUS [Concomitant]
     Active Substance: INSULIN GLARGINE

REACTIONS (3)
  - Insomnia [Recovered/Resolved]
  - Pain [Unknown]
  - Faeces soft [Unknown]

NARRATIVE: CASE EVENT DATE: 201708
